FAERS Safety Report 13778970 (Version 2)
Quarter: 2017Q3

REPORT INFORMATION
  Report Type: Spontaneous
  Country: US (occurrence: US)
  Receive Date: 20170721
  Receipt Date: 20170725
  Transmission Date: 20171127
  Serious: No
  Sender: FDA-Public Use
  Company Number: US-PFIZER INC-2017316350

PATIENT
  Age: 62 Year
  Sex: Female
  Weight: 90.72 kg

DRUGS (2)
  1. SKELAXIN [Suspect]
     Active Substance: METAXALONE
     Indication: HYPOTONIA
     Dosage: 800 MG, 2X/DAY (800MG TABLET ONCE TWO TIMES DAILY)
  2. SKELAXIN [Suspect]
     Active Substance: METAXALONE
     Indication: FIBROMYALGIA

REACTIONS (2)
  - Insomnia [Recovered/Resolved]
  - Feeling abnormal [Unknown]
